FAERS Safety Report 25955951 (Version 1)
Quarter: 2025Q4

REPORT INFORMATION
  Report Type: Spontaneous
  Country: US (occurrence: None)
  Receive Date: 20251024
  Receipt Date: 20251024
  Transmission Date: 20260117
  Serious: Yes (Other)
  Sender: UCB
  Company Number: US-UCBSA-2025049465

PATIENT
  Age: 43 Year

DRUGS (1)
  1. BIMZELX [Suspect]
     Active Substance: BIMEKIZUMAB-BKZX
     Indication: Psoriatic arthropathy
     Dosage: 320 MILLIGRAM, EV 4 WEEKS

REACTIONS (8)
  - Suicidal ideation [Unknown]
  - Blister [Unknown]
  - Rash [Unknown]
  - Urticaria [Unknown]
  - Skin exfoliation [Unknown]
  - Oropharyngeal pain [Unknown]
  - Candida infection [Unknown]
  - Off label use [Unknown]
